FAERS Safety Report 10570143 (Version 2)
Quarter: 2014Q4

REPORT INFORMATION
  Report Type: Spontaneous
  Country: JP (occurrence: None)
  Receive Date: 20141105
  Receipt Date: 20141117
  Transmission Date: 20150529
  Serious: Yes (Other)
  Sender: FDA-Public Use
  Company Number: A201410981

PATIENT
  Age: 68 Year
  Sex: Male

DRUGS (4)
  1. DERMOVATE (CLOBETASOL PROPIONATE) [Concomitant]
  2. METHADERM (DEXAMETHASONE DIPROPIONATE) OINTMENT; REGIMEN #1 [Concomitant]
     Active Substance: DEXAMETHASONE DIPROPIONATE
  3. TIVICAY [Suspect]
     Active Substance: DOLUTEGRAVIR SODIUM
     Indication: HIV INFECTION
     Route: 048
     Dates: start: 201406, end: 20140922
  4. EPZICOM (ABACAVIR SULFATE, LAMIVUDINE) [Concomitant]

REACTIONS (3)
  - Type 1 diabetes mellitus [None]
  - Glycosylated haemoglobin increased [None]
  - Diabetes mellitus [None]

NARRATIVE: CASE EVENT DATE: 201409
